FAERS Safety Report 17631679 (Version 1)
Quarter: 2020Q2

REPORT INFORMATION
  Report Type: Spontaneous
  Country: US (occurrence: US)
  Receive Date: 20200403
  Receipt Date: 20200403
  Transmission Date: 20200713
  Serious: Yes (Other)
  Sender: FDA-Public Use
  Company Number: None

PATIENT
  Age: 91 Year
  Sex: Female
  Weight: 70.31 kg

DRUGS (12)
  1. MULTIVITAMIN [Concomitant]
     Active Substance: VITAMINS
  2. AREDS 2 [Concomitant]
     Active Substance: MINERALS\VITAMINS
  3. L.THYRONINE [Concomitant]
  4. FLUORIOMETHOLONE EYE DROPS [Concomitant]
  5. PROBIOTIC [Concomitant]
     Active Substance: PROBIOTICS NOS
  6. PRESERVISION [Concomitant]
     Active Substance: MINERALS\VITAMINS
  7. VITAMIN D [Concomitant]
     Active Substance: VITAMIN D NOS
  8. MYRBETRIQ [Suspect]
     Active Substance: MIRABEGRON
     Indication: POLLAKIURIA
     Dosage: ?          QUANTITY:1 EXTENDED RELEASE;?
     Route: 048
     Dates: start: 20200130, end: 20200302
  9. GABA [Concomitant]
     Active Substance: HOMEOPATHICS
  10. ATENOLOL 25 MG [Concomitant]
     Active Substance: ATENOLOL
  11. FISH OIL [Concomitant]
     Active Substance: FISH OIL
  12. VITAMIN B6 [Concomitant]
     Active Substance: PYRIDOXINE HYDROCHLORIDE

REACTIONS (2)
  - Headache [None]
  - Hypertension [None]

NARRATIVE: CASE EVENT DATE: 20200225
